FAERS Safety Report 8343279-6 (Version None)
Quarter: 2012Q2

REPORT INFORMATION
  Report Type: 
  Country: None (occurrence: None)
  Receive Date: 20120508
  Receipt Date: 20120425
  Transmission Date: 20120825
  Serious: Yes (Death, Other)
  Sender: FDA-Public Use
  Company Number: GR-CELGENEUS-066-21880-09042090

PATIENT

DRUGS (6)
  1. REVLIMID [Suspect]
     Dosage: 15 MILLIGRAM
     Route: 048
  2. DEXAMETHASONE [Suspect]
     Indication: AMYLOIDOSIS
     Dosage: 20 MILLIGRAM
     Route: 065
  3. CYCLOPHOSPHAMIDE [Suspect]
     Indication: AMYLOIDOSIS
     Dosage: LEVEL 0: 50MG, LEVEL 1-4: 100MG
     Route: 065
  4. REVLIMID [Suspect]
     Indication: AMYLOIDOSIS
     Dosage: LEVEL 0-1: 10MG, LEVEL 2: 15MG, LEVEL 3: 20MG, LEVEL 4: 25MG
     Route: 048
  5. REVLIMID [Suspect]
     Dosage: 15 MILLIGRAM
     Route: 048
  6. ASPIRIN [Concomitant]
     Dosage: 100 MILLIGRAM
     Route: 065

REACTIONS (21)
  - HYPONATRAEMIA [None]
  - CONSTIPATION [None]
  - SUDDEN DEATH [None]
  - BLOOD CREATININE INCREASED [None]
  - AMYLOIDOSIS [None]
  - RENAL IMPAIRMENT [None]
  - DEEP VEIN THROMBOSIS [None]
  - ACUTE MYOCARDIAL INFARCTION [None]
  - INFECTION [None]
  - DIARRHOEA [None]
  - RASH [None]
  - THROMBOCYTOPENIA [None]
  - OEDEMA PERIPHERAL [None]
  - NEUROPATHY PERIPHERAL [None]
  - FATIGUE [None]
  - NEUTROPENIA [None]
  - CEREBROVASCULAR ACCIDENT [None]
  - HYPOTENSION [None]
  - MYALGIA [None]
  - ORTHOSTATIC HYPOTENSION [None]
  - HYPOCALCAEMIA [None]
